FAERS Safety Report 6326599-6 (Version None)
Quarter: 2009Q3

REPORT INFORMATION
  Report Type: 
  Country: None (occurrence: None)
  Receive Date: 20090821
  Receipt Date: 20090810
  Transmission Date: 20100115
  Serious: Yes (Hospitalization, Other)
  Sender: FDA-Public Use
  Company Number: ADR12562009

PATIENT
  Sex: Male

DRUGS (13)
  1. RANITIDINE [Suspect]
     Dosage: 50 MG D, TRANSPLACENTAL
     Route: 064
  2. CLONAZEPAM [Concomitant]
  3. FOLIC ACID [Concomitant]
  4. GENERAL ANAESTHETIC [Concomitant]
  5. HARTMANN'S SOLUTION [Concomitant]
  6. ISOFLURANE [Concomitant]
  7. LACTULOSE [Concomitant]
  8. LITHIUM CARBONATE [Concomitant]
  9. METOCLOPRAMIDE [Concomitant]
  10. OLANZAPINE [Concomitant]
  11. SODIUM CITRATE [Concomitant]
  12. SUCCINYLCHOLINE CHLORIDE [Concomitant]
  13. THIOPENTAL SODIUM [Concomitant]

REACTIONS (6)
  - CAESAREAN SECTION [None]
  - CONVULSION [None]
  - MATERNAL DRUGS AFFECTING FOETUS [None]
  - PREMATURE BABY [None]
  - PULMONARY HYPERTENSION [None]
  - THERAPEUTIC AGENT TOXICITY [None]
